FAERS Safety Report 7044010-7 (Version None)
Quarter: 2010Q4

REPORT INFORMATION
  Report Type: 
  Country: None (occurrence: None)
  Receive Date: 20101013
  Receipt Date: 20100111
  Transmission Date: 20110411
  Serious: Yes (Other)
  Sender: FDA-Public Use
  Company Number: US-AMGEN-QUU379859

PATIENT
  Sex: Female
  Weight: 63.1 kg

DRUGS (8)
  1. VECTIBIX [Suspect]
     Indication: COLORECTAL CANCER
     Dates: start: 20090930, end: 20091202
  2. FLUOROURACIL [Concomitant]
     Dates: start: 20090930, end: 20091230
  3. OXALIPLATIN [Concomitant]
  4. FOLINIC ACID [Concomitant]
  5. IRINOTECAN HYDROCHLORIDE [Concomitant]
  6. CAMPTOSAR [Concomitant]
     Dates: start: 20090930, end: 20091230
  7. LEUCOVORIN CALCIUM [Concomitant]
     Dates: start: 20080324, end: 20091230
  8. FLUOROURACIL [Concomitant]
     Dates: start: 20090324, end: 20091230

REACTIONS (3)
  - LEUKOPENIA [None]
  - SKIN TOXICITY [None]
  - STOMATITIS [None]
